FAERS Safety Report 20383328 (Version 1)
Quarter: 2022Q1

REPORT INFORMATION
  Report Type: Spontaneous
  Country: US (occurrence: US)
  Receive Date: 20220127
  Receipt Date: 20220127
  Transmission Date: 20220423
  Serious: Yes (Hospitalization, Other)
  Sender: FDA-Public Use
  Company Number: US-PFIZER INC-202200073737

PATIENT
  Age: 46 Year
  Sex: Female
  Weight: 80.726 kg

DRUGS (7)
  1. FUROSEMIDE [Suspect]
     Active Substance: FUROSEMIDE
     Dosage: UNK
  2. FUROSEMIDE [Suspect]
     Active Substance: FUROSEMIDE
     Dosage: UNK (INCREASED DOSE)
  3. TYVASO [Suspect]
     Active Substance: TREPROSTINIL
     Indication: Pulmonary arterial hypertension
     Dosage: UNK
     Route: 055
     Dates: start: 20210113
  4. TYVASO [Suspect]
     Active Substance: TREPROSTINIL
     Dosage: UNK, 4X/DAY (18-54 UG)
     Route: 055
     Dates: start: 2021
  5. OXYCODONE [Suspect]
     Active Substance: OXYCODONE
     Dosage: UNK
     Dates: start: 20211226
  6. OPSUMIT [Concomitant]
     Active Substance: MACITENTAN
     Dosage: UNK
  7. DILTIAZEM [Concomitant]
     Active Substance: DILTIAZEM
     Dosage: UNK

REACTIONS (18)
  - Pericardial effusion [Unknown]
  - Atrial fibrillation [Unknown]
  - Hypoxia [Unknown]
  - Ascites [Unknown]
  - Hypotension [Unknown]
  - Chest discomfort [Unknown]
  - Heart rate irregular [Unknown]
  - Dyspnoea [Not Recovered/Not Resolved]
  - Cough [Unknown]
  - Rhinorrhoea [Unknown]
  - Wheezing [Not Recovered/Not Resolved]
  - Rales [Not Recovered/Not Resolved]
  - Dizziness [Unknown]
  - Ear discomfort [Unknown]
  - Fluid retention [Unknown]
  - Vomiting [Unknown]
  - Nausea [Unknown]
  - Condition aggravated [Unknown]

NARRATIVE: CASE EVENT DATE: 20210101
